FAERS Safety Report 21006579 (Version 1)
Quarter: 2022Q2

REPORT INFORMATION
  Report Type: Other
  Country: IT (occurrence: IT)
  Receive Date: 20220624
  Receipt Date: 20220624
  Transmission Date: 20220721
  Serious: Yes (Hospitalization, Other)
  Sender: FDA-Public Use
  Company Number: IT-CELLTRION INC.-2022IT009591

PATIENT

DRUGS (1)
  1. INFLIXIMAB [Suspect]
     Active Substance: INFLIXIMAB
     Indication: Crohn^s disease
     Dosage: 5 MG/KG, CYCLIC
     Route: 041
     Dates: start: 20220228, end: 20220314

REACTIONS (1)
  - Intestinal perforation [Recovered/Resolved with Sequelae]

NARRATIVE: CASE EVENT DATE: 20220426
